FAERS Safety Report 9257748 (Version 1)
Quarter: 2013Q2

REPORT INFORMATION
  Report Type: Spontaneous
  Country: US (occurrence: None)
  Receive Date: 20130424
  Receipt Date: 20130424
  Transmission Date: 20140414
  Serious: Yes (Disabling, Other)
  Sender: FDA-Public Use
  Company Number: None

PATIENT
  Sex: Female
  Weight: 68.04 kg

DRUGS (1)
  1. MIRENA [Suspect]
     Indication: CONTRACEPTION
     Route: 015
     Dates: start: 20120313, end: 20130423

REACTIONS (6)
  - Tachycardia [None]
  - Palpitations [None]
  - Syncope [None]
  - Nausea [None]
  - Vomiting [None]
  - Dyspnoea [None]
